FAERS Safety Report 11318637 (Version 5)
Quarter: 2019Q2

REPORT INFORMATION
  Report Type: Spontaneous
  Country: DE (occurrence: DE)
  Receive Date: 20150729
  Receipt Date: 20190409
  Transmission Date: 20190711
  Serious: Yes (Death, Hospitalization, Other)
  Sender: FDA-Public Use
  Company Number: DE-AMGEN-DEUSP2015075488

PATIENT
  Age: 68 Year
  Sex: Female
  Weight: 69 kg

DRUGS (13)
  1. XGEVA [Suspect]
     Active Substance: DENOSUMAB
     Indication: METASTASES TO BONE
     Dosage: 120 MILLIGRAM
     Route: 058
     Dates: start: 20121002, end: 20121010
  2. BISOPROLOL [Concomitant]
     Active Substance: BISOPROLOL
     Dosage: 2.5 MILLIGRAM
     Dates: end: 20121010
  3. EZETIMIBE. [Concomitant]
     Active Substance: EZETIMIBE
     Dosage: 10 MILLIGRAM
     Dates: start: 20030401, end: 20131210
  4. XGEVA [Suspect]
     Active Substance: DENOSUMAB
     Indication: PROPHYLAXIS
  5. NOVALGIN (CAFFEINE\PARACETAMOL\PROPYPHENAZONE) [Concomitant]
     Active Substance: ACETAMINOPHEN\CAFFEINE\PROPYPHENAZONE
     Indication: PAIN
     Dosage: 160 DROP
     Dates: start: 20110201, end: 20121010
  6. LYRICA [Concomitant]
     Active Substance: PREGABALIN
     Indication: PAIN
     Dosage: 200 MILLIGRAM
     Dates: start: 20110201, end: 20121010
  7. SIMVASTATIN. [Concomitant]
     Active Substance: SIMVASTATIN
     Dosage: 40 MILLIGRAM
     Dates: start: 20030401, end: 20121010
  8. PANTOPRAZOL [Concomitant]
     Active Substance: PANTOPRAZOLE SODIUM
     Indication: PROPHYLAXIS
     Dosage: 80 MILLIGRAM
     Dates: start: 20110201, end: 20121010
  9. RAMIPRIL. [Concomitant]
     Active Substance: RAMIPRIL
     Dosage: 5 MILLIGRAM
     Dates: end: 20121010
  10. EXEMESTAN [Concomitant]
     Active Substance: EXEMESTANE
     Dosage: 25 MILLIGRAM/SQ. METER
     Dates: start: 20120620, end: 20120808
  11. EXEMESTAN [Concomitant]
     Active Substance: EXEMESTANE
     Dosage: 25 MILLIGRAM/SQ. METER
     Dates: start: 20120809, end: 20120905
  12. VALORON [TILIDINE HYDROCHLORIDE] [Concomitant]
     Active Substance: TILIDINE HYDROCHLORIDE
     Indication: PAIN
     Dosage: 300 MILLIGRAM
     Dates: start: 20110201, end: 20121010
  13. EXEMESTAN [Concomitant]
     Active Substance: EXEMESTANE
     Dosage: 25 MILLIGRAM/SQ. METER
     Dates: start: 20120906, end: 20121010

REACTIONS (5)
  - Death [Fatal]
  - Blood bilirubin increased [Not Recovered/Not Resolved]
  - Anaemia [Not Recovered/Not Resolved]
  - General physical health deterioration [Not Recovered/Not Resolved]
  - Tumour lysis syndrome [Not Recovered/Not Resolved]

NARRATIVE: CASE EVENT DATE: 20121002
